FAERS Safety Report 8580912-8 (Version None)
Quarter: 2012Q3

REPORT INFORMATION
  Report Type: 
  Country: None (occurrence: None)
  Receive Date: 20120809
  Receipt Date: 20120801
  Transmission Date: 20120928
  Serious: Yes (Death, Other)
  Sender: FDA-Public Use
  Company Number: JP-GENZYME-THYM-1001744

PATIENT
  Sex: Male
  Weight: 60 kg

DRUGS (15)
  1. KETAMINE HCL [Concomitant]
     Indication: ANALGESIC THERAPY
     Dosage: UNK
     Route: 065
     Dates: start: 20100713, end: 20100713
  2. ACYCLOVIR [Concomitant]
     Indication: INFECTION PROPHYLAXIS
     Dosage: UNK
     Route: 065
     Dates: start: 20100726, end: 20100727
  3. THYMOGLOBULIN [Suspect]
     Indication: BONE MARROW CONDITIONING REGIMEN
     Dosage: 75 MG, QD
     Route: 042
     Dates: start: 20100710, end: 20100711
  4. ALBUMIN (HUMAN) [Concomitant]
     Indication: NON-HODGKIN'S LYMPHOMA
     Dosage: UNK
     Route: 065
     Dates: start: 20100710, end: 20100730
  5. IMMUNE GLOBULIN (HUMAN) [Concomitant]
     Indication: NON-HODGKIN'S LYMPHOMA
     Dosage: UNK
     Route: 065
     Dates: start: 20100712, end: 20100720
  6. HYDROCORTISONE SODIUM SUCCINATE [Concomitant]
     Indication: PROPHYLAXIS
     Dosage: UNK
     Route: 065
     Dates: start: 20100712, end: 20100715
  7. MORPHINE HCL ELIXIR [Concomitant]
     Indication: NON-HODGKIN'S LYMPHOMA
     Dosage: UNK
     Route: 065
     Dates: start: 20100713, end: 20100730
  8. DALTEPARIN SODIUM [Concomitant]
     Indication: PROPHYLAXIS
     Dosage: UNK
     Route: 065
     Dates: start: 20100710, end: 20100730
  9. AZASETRON HYDROCHLORIDE [Concomitant]
     Indication: NON-HODGKIN'S LYMPHOMA
     Dosage: UNK
     Route: 065
     Dates: start: 20100712, end: 20100714
  10. CONCENTRATED GLYCERINE FRUCTOSE [Concomitant]
     Indication: NON-HODGKIN'S LYMPHOMA
     Dosage: UNK
     Route: 065
     Dates: start: 20100713, end: 20100715
  11. CIDOFOVIR [Concomitant]
     Indication: CYSTITIS HAEMORRHAGIC
     Dosage: UNK
     Route: 065
     Dates: start: 20100710, end: 20100712
  12. DEXAMETHASONE [Concomitant]
     Indication: NON-HODGKIN'S LYMPHOMA
     Dosage: UNK
     Route: 065
     Dates: start: 20100714, end: 20100714
  13. CEFOZOPRAN HYDROCHLORIDE [Concomitant]
     Indication: PROPHYLAXIS
     Dosage: UNK
     Route: 065
     Dates: start: 20100708, end: 20100713
  14. METHYLPREDNISOLONE SODIUM SUCCINATE [Concomitant]
     Indication: PREMEDICATION
     Dosage: UNK
     Route: 065
     Dates: start: 20100710, end: 20100730
  15. PROBENECID [Concomitant]
     Indication: PROPHYLAXIS
     Dosage: UNK
     Route: 065
     Dates: start: 20100710, end: 20100712

REACTIONS (5)
  - RENAL DISORDER [None]
  - SEPSIS [None]
  - HYPERTENSION [None]
  - LIVER DISORDER [None]
  - CARDIAC FAILURE [None]
